FAERS Safety Report 7620112-9 (Version None)
Quarter: 2011Q3

REPORT INFORMATION
  Report Type: 
  Country: None (occurrence: None)
  Receive Date: 20110719
  Receipt Date: 20110712
  Transmission Date: 20111222
  Serious: Yes (Other)
  Sender: FDA-Public Use
  Company Number: BE-BRISTOL-MYERS SQUIBB COMPANY-15870165

PATIENT
  Age: 49 Year
  Sex: Male
  Weight: 50 kg

DRUGS (13)
  1. CISPLATIN [Concomitant]
  2. ERBITUX [Suspect]
     Indication: OROPHARYNGEAL CANCER RECURRENT
     Dosage: 5 MG/ML IS THE STRENGTH.
     Dates: start: 20101201, end: 20110501
  3. MOTILIUM [Concomitant]
  4. FUCICORT [Concomitant]
  5. DURAGESIC-100 [Concomitant]
  6. RANITIDINE [Concomitant]
  7. ACETAMINOPHEN [Concomitant]
  8. MEDROL [Concomitant]
  9. MAGNESIUM [Concomitant]
  10. OXYCODONE HCL [Concomitant]
     Dosage: 4-6 TIMES A DAY
  11. ROZEX [Concomitant]
     Indication: RASH
     Dosage: UPTO 2* DAY
  12. LITICAN [Concomitant]
     Dosage: 1 DF: 2*2 CO/DAY
  13. TAMSULOSIN HCL [Concomitant]

REACTIONS (1)
  - OEDEMA [None]
